FAERS Safety Report 8804599 (Version 3)
Quarter: 2012Q4

REPORT INFORMATION
  Report Type: 
  Country: US (occurrence: US)
  Receive Date: 20120924
  Receipt Date: 20121022
  Transmission Date: 20130627
  Serious: Yes (Other)
  Sender: FDA-Public Use
  Company Number: US-JNJFOC-20110803124

PATIENT
  Sex: Male
  Weight: 104.33 kg

DRUGS (1)
  1. LEVAQUIN [Suspect]
     Indication: BACTERIAL INFECTION
     Route: 048

REACTIONS (3)
  - Rotator cuff syndrome [Recovered/Resolved]
  - Tendonitis [Unknown]
  - Tenosynovitis [Unknown]
